FAERS Safety Report 8824566 (Version 1)
Quarter: 2012Q4

REPORT INFORMATION
  Report Type: 
  Country: FR (occurrence: FR)
  Receive Date: 20121004
  Receipt Date: 20121004
  Transmission Date: 20130627
  Serious: Yes (Hospitalization)
  Sender: FDA-Public Use
  Company Number: FR-TEVA-360096ISR

PATIENT
  Age: 13 Year
  Sex: Female

DRUGS (3)
  1. FLURBIPROFEN [Suspect]
     Indication: DYSMENORRHOEA
     Route: 048
     Dates: start: 20120717, end: 20120721
  2. DOLIPRANE [Concomitant]
     Indication: DYSMENORRHOEA
     Dates: start: 20120717
  3. SPASFON [Concomitant]
     Indication: DYSMENORRHOEA
     Dates: start: 20120717

REACTIONS (3)
  - Renal failure acute [Recovered/Resolved]
  - Lipase increased [Recovered/Resolved]
  - Abdominal pain [None]
